FAERS Safety Report 9285081 (Version 1)
Quarter: 2013Q2

REPORT INFORMATION
  Report Type: Spontaneous
  Country: US (occurrence: US)
  Receive Date: 20130513
  Receipt Date: 20130513
  Transmission Date: 20140414
  Serious: No
  Sender: FDA-Public Use
  Company Number: US-TEVA-401693USA

PATIENT
  Age: 45 Year
  Sex: Male
  Weight: 104.42 kg

DRUGS (9)
  1. PROAIR HFA [Suspect]
  2. PRILOSEC [Concomitant]
     Indication: GASTROOESOPHAGEAL REFLUX DISEASE
  3. HYDROCLORATE [Concomitant]
     Indication: HYPERTENSION
  4. XANAX [Concomitant]
     Indication: ANXIETY
  5. AMBIEN [Concomitant]
     Indication: SLEEP DISORDER
  6. FENTANYL [Concomitant]
     Indication: PAIN
     Route: 062
  7. METHOTREXATE [Concomitant]
     Indication: PSORIATIC ARTHROPATHY
  8. FOLIC ACID [Concomitant]
     Indication: PSORIATIC ARTHROPATHY
  9. REMICADE [Concomitant]
     Indication: PSORIATIC ARTHROPATHY

REACTIONS (1)
  - Incorrect dose administered [Unknown]
